FAERS Safety Report 8875228 (Version 1)
Quarter: 2012Q4

REPORT INFORMATION
  Report Type: 
  Country: SE (occurrence: SE)
  Receive Date: 20121029
  Receipt Date: 20121029
  Transmission Date: 20130627
  Serious: Yes (Hospitalization)
  Sender: FDA-Public Use
  Company Number: SE-UCBSA-069046

PATIENT
  Age: 56 Year
  Sex: Female

DRUGS (3)
  1. KEPPRA [Suspect]
     Dosage: DAILY DOSE:1.5 G
     Route: 048
     Dates: end: 2012
  2. KEPPRA [Suspect]
     Dosage: DAILY DOSE:1 G
     Route: 048
     Dates: start: 2012
  3. WARAN [Suspect]
     Dates: end: 20120524

REACTIONS (4)
  - Petit mal epilepsy [Recovered/Resolved]
  - Dysarthria [Recovered/Resolved]
  - Confusional state [Recovered/Resolved]
  - Prothrombin level decreased [Unknown]
